FAERS Safety Report 9512113 (Version 1)
Quarter: 2013Q1

REPORT INFORMATION
  Report Type: Spontaneous
  Country: US (occurrence: None)
  Receive Date: 20130305
  Receipt Date: 20130305
  Transmission Date: 20140127
  Serious: Yes (Hospitalization)
  Sender: FDA-Public Use
  Company Number: 163-21880-12050536

PATIENT
  Age: 78 Year
  Sex: Male

DRUGS (1)
  1. REVLIMID (LENALIDOMIDE) (25 MILLIGRAM) [Suspect]
     Indication: PLASMA CELL MYELOMA
     Dosage: 25 MG, D1-21
     Dates: start: 20120216

REACTIONS (2)
  - Cellulitis [None]
  - Thrombocytopenia [None]
